FAERS Safety Report 11504029 (Version 1)
Quarter: 2015Q3

REPORT INFORMATION
  Report Type: Spontaneous
  Country: NZ (occurrence: NZ)
  Receive Date: 20150914
  Receipt Date: 20150914
  Transmission Date: 20151125
  Serious: Yes (Other)
  Sender: FDA-Public Use
  Company Number: NZ-PFIZER INC-2015245371

PATIENT
  Age: 47 Year
  Sex: Male
  Weight: 80 kg

DRUGS (1)
  1. CHAMPIX [Suspect]
     Active Substance: VARENICLINE TARTRATE
     Indication: SMOKING CESSATION THERAPY
     Dosage: 1 MG, 2X/DAY
     Route: 048
     Dates: start: 201412, end: 20150129

REACTIONS (10)
  - Poor quality sleep [Recovered/Resolved]
  - Activities of daily living impaired [Recovered/Resolved]
  - Nightmare [Recovered/Resolved]
  - Emotional distress [Recovered/Resolved]
  - Negative thoughts [Recovered/Resolved]
  - Emotional disorder [Recovered/Resolved]
  - Road traffic accident [Recovered/Resolved]
  - Mood swings [Recovered/Resolved]
  - Crying [Recovered/Resolved]
  - Headache [Recovered/Resolved]

NARRATIVE: CASE EVENT DATE: 201501
